FAERS Safety Report 24677868 (Version 1)
Quarter: 2024Q4

REPORT INFORMATION
  Report Type: Spontaneous
  Country: BE (occurrence: BE)
  Receive Date: 20241129
  Receipt Date: 20241129
  Transmission Date: 20250115
  Serious: Yes (Hospitalization)
  Sender: Haleon PLC
  Company Number: None

PATIENT
  Age: 45 Year
  Sex: Male
  Weight: 95 kg

DRUGS (4)
  1. IBUPROFEN [Suspect]
     Active Substance: IBUPROFEN
     Indication: Product used for unknown indication
     Dosage: TAKEN FOR A FEW DAYS
  2. DAFALGAN [Suspect]
     Active Substance: ACETAMINOPHEN
     Indication: Product used for unknown indication
     Dosage: TAKEN FOR A FEW DAYS
  3. EXCEDRIN [Suspect]
     Active Substance: ACETAMINOPHEN\ASPIRIN\CAFFEINE
     Indication: Analgesic therapy
     Dosage: NOT KNOWN?TAKEN IN THE DAYS BEFORE THE ADVERSE REACTION OCCURRED, IT IS NOT KNOWN HOW LONG.
     Route: 048
  4. AUGMENTIN [Suspect]
     Active Substance: AMOXICILLIN\CLAVULANATE POTASSIUM
     Indication: Tooth abscess
     Route: 048
     Dates: end: 20241008

REACTIONS (3)
  - Reversible cerebral vasoconstriction syndrome [Recovering/Resolving]
  - Overdose [Recovering/Resolving]
  - Thunderclap headache [Recovering/Resolving]

NARRATIVE: CASE EVENT DATE: 20241008
